FAERS Safety Report 19805879 (Version 2)
Quarter: 2022Q3

REPORT INFORMATION
  Report Type: Spontaneous
  Country: US (occurrence: US)
  Receive Date: 20210908
  Receipt Date: 20220909
  Transmission Date: 20221027
  Serious: No
  Sender: FDA-Public Use
  Company Number: US-ASTELLAS-2021US021898

PATIENT
  Sex: Male

DRUGS (3)
  1. XTANDI [Suspect]
     Active Substance: ENZALUTAMIDE
     Indication: Prostate cancer
     Dosage: UNK UNK, UNKNOWN FREQ.
     Route: 065
  2. ORGOVYX [Suspect]
     Active Substance: RELUGOLIX
     Indication: Prostate cancer
     Dosage: 360 MG, ONE TIME DOSE
     Route: 048
     Dates: start: 20210429, end: 20210429
  3. ORGOVYX [Suspect]
     Active Substance: RELUGOLIX
     Route: 048
     Dates: start: 20210430

REACTIONS (14)
  - Blood pressure abnormal [Unknown]
  - Arthropathy [Unknown]
  - Flatulence [Unknown]
  - Abdominal distension [Unknown]
  - Faeces hard [Unknown]
  - Hyperhidrosis [Unknown]
  - Rash macular [Unknown]
  - Groin pain [Unknown]
  - Infrequent bowel movements [Unknown]
  - Abdominal pain upper [Unknown]
  - Urinary incontinence [Recovering/Resolving]
  - Back pain [Unknown]
  - Faeces soft [Unknown]
  - Fatigue [Not Recovered/Not Resolved]
